FAERS Safety Report 10494245 (Version 1)
Quarter: 2014Q4

REPORT INFORMATION
  Report Type: Spontaneous
  Country: US (occurrence: US)
  Receive Date: 20141003
  Receipt Date: 20141003
  Transmission Date: 20150528
  Serious: Yes (Other)
  Sender: FDA-Public Use
  Company Number: US-GLAXOSMITHKLINE-A1090447A

PATIENT
  Sex: Male

DRUGS (12)
  1. POTASSIUM [Concomitant]
     Active Substance: POTASSIUM
  2. ADVAIR HFA [Suspect]
     Active Substance: FLUTICASONE PROPIONATE\SALMETEROL XINAFOATE
     Indication: PRODUCT USED FOR UNKNOWN INDICATION
     Dosage: 1PUFF TWICE PER DAY
     Route: 055
  3. FLONASE [Suspect]
     Active Substance: FLUTICASONE PROPIONATE
     Indication: PRODUCT USED FOR UNKNOWN INDICATION
     Dosage: 2SPR PER DAY
     Route: 045
  4. TOPROL XL [Concomitant]
     Active Substance: METOPROLOL SUCCINATE
  5. DITROPAN XL [Concomitant]
     Active Substance: OXYBUTYNIN CHLORIDE
  6. AMARYL [Concomitant]
     Active Substance: GLIMEPIRIDE
  7. PLAVIX [Concomitant]
     Active Substance: CLOPIDOGREL BISULFATE
  8. RANEXA [Concomitant]
     Active Substance: RANOLAZINE
  9. TESSALON [Concomitant]
     Active Substance: BENZONATATE
  10. VENTOLIN [Suspect]
     Active Substance: ALBUTEROL SULFATE
     Indication: PRODUCT USED FOR UNKNOWN INDICATION
     Dosage: 2PUFF PER DAY
     Route: 055
  11. LIPITOR [Concomitant]
     Active Substance: ATORVASTATIN CALCIUM
  12. ASPIRIN. [Concomitant]
     Active Substance: ASPIRIN

REACTIONS (4)
  - Heart valve replacement [Recovering/Resolving]
  - Chest pain [Recovering/Resolving]
  - Coronary artery bypass [Recovering/Resolving]
  - Knee arthroplasty [Recovering/Resolving]

NARRATIVE: CASE EVENT DATE: 2014
